FAERS Safety Report 7204251-2 (Version None)
Quarter: 2010Q4

REPORT INFORMATION
  Report Type: 
  Country: None (occurrence: None)
  Receive Date: 20101230
  Receipt Date: 20101228
  Transmission Date: 20110411
  Serious: Yes (Other)
  Sender: FDA-Public Use
  Company Number: US-PFIZER INC-2010180537

PATIENT
  Sex: Female

DRUGS (1)
  1. AMLODIPINE BESYLATE [Suspect]
     Indication: HYPERTENSION
     Dosage: 2.5 MG, 1X/DAY
     Route: 048
     Dates: end: 20101224

REACTIONS (12)
  - ABASIA [None]
  - BURNING SENSATION [None]
  - DYSPHAGIA [None]
  - DYSPNOEA [None]
  - HEPATIC FAILURE [None]
  - INFLAMMATION [None]
  - LOCAL SWELLING [None]
  - MUSCLE INJURY [None]
  - NEPHRECTOMY [None]
  - RENAL FAILURE [None]
  - TINNITUS [None]
  - VISUAL ACUITY REDUCED [None]
